FAERS Safety Report 7107024-4 (Version None)
Quarter: 2010Q4

REPORT INFORMATION
  Report Type: 
  Country: None (occurrence: None)
  Receive Date: 20101116
  Receipt Date: 20100927
  Transmission Date: 20110411
  Serious: No
  Sender: FDA-Public Use
  Company Number: US-ABBOTT-10P-163-0673561-00

PATIENT
  Sex: Female

DRUGS (4)
  1. SIMCOR [Suspect]
     Indication: PRODUCT USED FOR UNKNOWN INDICATION
     Dates: start: 20100924
  2. ASPIRIN [Concomitant]
     Indication: PRODUCT USED FOR UNKNOWN INDICATION
     Dosage: DAILY AT BEDTIME
     Route: 048
  3. UNKNOWN HYPERTENSION MEDICATION [Concomitant]
     Indication: HYPERTENSION
  4. TYLENOL (CAPLET) [Concomitant]
     Indication: PRODUCT USED FOR UNKNOWN INDICATION

REACTIONS (3)
  - FEELING HOT [None]
  - HOT FLUSH [None]
  - NAUSEA [None]
